FAERS Safety Report 6484543-5 (Version None)
Quarter: 2009Q4

REPORT INFORMATION
  Report Type: 
  Country: None (occurrence: None)
  Receive Date: 20091209
  Receipt Date: 20091204
  Transmission Date: 20100525
  Serious: Yes (Death, Hospitalization)
  Sender: FDA-Public Use
  Company Number: PHHY2009JP45852

PATIENT
  Sex: Male
  Weight: 54 kg

DRUGS (9)
  1. GLEEVEC [Suspect]
     Indication: PLEURAL NEOPLASM
     Dosage: 400 MG DAILY
     Route: 048
     Dates: start: 20080922, end: 20080930
  2. AMLODIN [Concomitant]
     Dosage: 2.5 MG, UNK
     Route: 048
     Dates: end: 20081006
  3. STARSIS [Concomitant]
     Dosage: 270 MG, UNK
     Route: 048
     Dates: end: 20081004
  4. LOXONIN [Concomitant]
     Dosage: 180 MG, UNK
     Route: 048
     Dates: end: 20081004
  5. GASLON [Concomitant]
     Dosage: 4 MG, UNK
     Route: 048
     Dates: end: 20081004
  6. PARIET [Concomitant]
     Dosage: 10 MG, UNK
     Route: 048
     Dates: start: 20080912, end: 20081004
  7. HARNAL [Concomitant]
     Dosage: 0.2 MG, UNK
     Route: 048
     Dates: start: 20080922, end: 20081004
  8. CERCINE [Concomitant]
     Dosage: 2 MG, UNK
     Route: 048
     Dates: start: 20080918, end: 20081004
  9. HYDROXOCOBALAMIN ACETATE [Concomitant]
     Dosage: 1000 UG, UNK
     Route: 030
     Dates: start: 20080916

REACTIONS (6)
  - DYSPNOEA [None]
  - LUNG INFILTRATION [None]
  - MALIGNANT NEOPLASM PROGRESSION [None]
  - METASTASES TO CHEST WALL [None]
  - PNEUMONIA [None]
  - PNEUMONITIS [None]
